APPROVED DRUG PRODUCT: ERYTHROMYCIN
Active Ingredient: ERYTHROMYCIN
Strength: 250MG
Dosage Form/Route: TABLET;ORAL
Application: A215661 | Product #001 | TE Code: AB
Applicant: ALEMBIC PHARMACEUTICALS LTD
Approved: Aug 24, 2023 | RLD: No | RS: No | Type: RX